FAERS Safety Report 7621760-2 (Version None)
Quarter: 2011Q3

REPORT INFORMATION
  Report Type: 
  Country: None (occurrence: None)
  Receive Date: 20110719
  Receipt Date: 20110712
  Transmission Date: 20111222
  Serious: Yes (Hospitalization, Other)
  Sender: FDA-Public Use
  Company Number: FR-BRISTOL-MYERS SQUIBB COMPANY-15898430

PATIENT
  Age: 71 Year
  Sex: Male
  Weight: 67 kg

DRUGS (1)
  1. IPILIMUMAB [Suspect]
     Indication: MALIGNANT MELANOMA
     Dosage: 200MG:09JUN2011; 190MG:30JUN2011
     Route: 042
     Dates: start: 20110609, end: 20110101

REACTIONS (7)
  - DEHYDRATION [None]
  - VOMITING [None]
  - RENAL FAILURE ACUTE [None]
  - CYTOLYTIC HEPATITIS [None]
  - DIARRHOEA [None]
  - SUBILEUS [None]
  - RASH [None]
